FAERS Safety Report 6315623-2 (Version None)
Quarter: 2009Q3

REPORT INFORMATION
  Report Type: 
  Country: None (occurrence: None)
  Receive Date: 20090819
  Receipt Date: 20090813
  Transmission Date: 20100115
  Serious: Yes (Hospitalization)
  Sender: FDA-Public Use
  Company Number: FR-ALLERGAN-0911524US

PATIENT
  Age: 78 Year
  Sex: Female

DRUGS (1)
  1. TROSPIUM CHLORIDE [Suspect]
     Indication: DYSURIA
     Dosage: 20 MG, UNKNOWN
     Route: 048
     Dates: start: 20090730, end: 20090802

REACTIONS (1)
  - ANGIOEDEMA [None]
